FAERS Safety Report 14250320 (Version 1)
Quarter: 2017Q4

REPORT INFORMATION
  Report Type: Spontaneous
  Country: US (occurrence: US)
  Receive Date: 20171205
  Receipt Date: 20171205
  Transmission Date: 20180321
  Serious: Yes (Hospitalization, Other)
  Sender: FDA-Public Use
  Company Number: US-APOTEX-2017AP022358

PATIENT
  Sex: Female
  Weight: 2.65 kg

DRUGS (3)
  1. AMIODARONE HYDROCHLORIDE. [Suspect]
     Active Substance: AMIODARONE HYDROCHLORIDE
     Indication: JUNCTIONAL ECTOPIC TACHYCARDIA
     Dosage: 600 MG ORALLY EVERY 8 HOURS ! 24 HOURS, FOLLOWED BY 300 MG ORALLY EVERY 12 HOURS
     Route: 064
  2. SOTALOL HYDROCHLORIDE. [Suspect]
     Active Substance: SOTALOL HYDROCHLORIDE
     Indication: JUNCTIONAL ECTOPIC TACHYCARDIA
     Dosage: UNK
     Route: 064
  3. DIGOXIN. [Suspect]
     Active Substance: DIGOXIN
     Indication: JUNCTIONAL ECTOPIC TACHYCARDIA
     Dosage: UNK
     Route: 064

REACTIONS (3)
  - Electrocardiogram QRS complex prolonged [Recovered/Resolved]
  - Bundle branch block left [Recovered/Resolved]
  - Foetal exposure during pregnancy [Unknown]
